FAERS Safety Report 7412508-5 (Version None)
Quarter: 2011Q2

REPORT INFORMATION
  Report Type: 
  Country: None (occurrence: None)
  Receive Date: 20110413
  Receipt Date: 20110404
  Transmission Date: 20111010
  Serious: Yes (Other)
  Sender: FDA-Public Use
  Company Number: AT-ELI_LILLY_AND_COMPANY-AT201103007493

PATIENT
  Age: 80 Year
  Sex: Male

DRUGS (3)
  1. EFFIENT [Suspect]
     Dosage: 60 MG, ONCE
  2. EFFIENT [Interacting]
     Dosage: 10 MG, UNK
     Route: 048
  3. PLAVIX [Interacting]
     Dosage: 75 MG, UNK

REACTIONS (1)
  - TOXIC EPIDERMAL NECROLYSIS [None]
